FAERS Safety Report 21271067 (Version 2)
Quarter: 2022Q4

REPORT INFORMATION
  Report Type: Report from Study
  Country: US (occurrence: US)
  Receive Date: 20220830
  Receipt Date: 20221227
  Transmission Date: 20230113
  Serious: Yes (Hospitalization)
  Sender: FDA-Public Use
  Company Number: US-TAKEDA-2022TUS059246

PATIENT
  Sex: Female

DRUGS (8)
  1. TEDUGLUTIDE [Suspect]
     Active Substance: TEDUGLUTIDE
     Indication: Short-bowel syndrome
     Dosage: 2 MILLIGRAM, QD
     Route: 058
     Dates: start: 202207
  2. TEDUGLUTIDE [Suspect]
     Active Substance: TEDUGLUTIDE
     Indication: Short-bowel syndrome
     Dosage: 2 MILLIGRAM, QD
     Route: 058
     Dates: start: 202207
  3. TEDUGLUTIDE [Suspect]
     Active Substance: TEDUGLUTIDE
     Indication: Short-bowel syndrome
     Dosage: 2 MILLIGRAM, QD
     Route: 058
     Dates: start: 202207
  4. TEDUGLUTIDE [Suspect]
     Active Substance: TEDUGLUTIDE
     Indication: Short-bowel syndrome
     Dosage: 2 MILLIGRAM, QD
     Route: 058
     Dates: start: 202207
  5. TEDUGLUTIDE [Suspect]
     Active Substance: TEDUGLUTIDE
     Indication: Intestinal obstruction
     Dosage: 2 MILLIGRAM, QD
     Route: 058
     Dates: start: 20220726
  6. TEDUGLUTIDE [Suspect]
     Active Substance: TEDUGLUTIDE
     Indication: Intestinal obstruction
     Dosage: 2 MILLIGRAM, QD
     Route: 058
     Dates: start: 20220726
  7. TEDUGLUTIDE [Suspect]
     Active Substance: TEDUGLUTIDE
     Indication: Intestinal obstruction
     Dosage: 2 MILLIGRAM, QD
     Route: 058
     Dates: start: 20220726
  8. TEDUGLUTIDE [Suspect]
     Active Substance: TEDUGLUTIDE
     Indication: Intestinal obstruction
     Dosage: 2 MILLIGRAM, QD
     Route: 058
     Dates: start: 20220726

REACTIONS (4)
  - Renal disorder [Unknown]
  - Cardiac disorder [Unknown]
  - Dyspnoea [Unknown]
  - Drug ineffective [Unknown]
